FAERS Safety Report 4905994-3 (Version None)
Quarter: 2006Q1

REPORT INFORMATION
  Report Type: 
  Country: None (occurrence: None)
  Receive Date: 20060206
  Receipt Date: 20060123
  Transmission Date: 20060701
  Serious: Yes (Other)
  Sender: FDA-Public Use
  Company Number: 2006011587

PATIENT
  Sex: Male

DRUGS (3)
  1. NEURONTIN [Suspect]
     Indication: GRAND MAL CONVULSION
  2. DILANTIN [Suspect]
     Indication: GRAND MAL CONVULSION
  3. TEGRETOL [Suspect]
     Indication: GRAND MAL CONVULSION

REACTIONS (2)
  - ANTICONVULSANT DRUG LEVEL DECREASED [None]
  - CONVULSION [None]
